FAERS Safety Report 5117171-4 (Version None)
Quarter: 2006Q3

REPORT INFORMATION
  Report Type: 
  Country: None (occurrence: None)
  Receive Date: 20060927
  Receipt Date: 20060927
  Transmission Date: 20061208
  Serious: Yes (Hospitalization)
  Sender: FDA-Public Use
  Company Number: None

PATIENT
  Age: 66 Year
  Sex: Female

DRUGS (2)
  1. LEVOFLOXACIN [Suspect]
     Dosage: 500MG DAILY PO
     Route: 048
     Dates: start: 20060326, end: 20060329
  2. SIMVASTATIN [Suspect]
     Dosage: 20MG DAILY PO
     Route: 048
     Dates: start: 20060106, end: 20060329

REACTIONS (1)
  - PANCREATITIS ACUTE [None]
